FAERS Safety Report 15784293 (Version 1)
Quarter: 2019Q1

REPORT INFORMATION
  Report Type: Spontaneous
  Country: PK (occurrence: PK)
  Receive Date: 20190103
  Receipt Date: 20190103
  Transmission Date: 20190417
  Serious: Yes (Life-Threatening, Other)
  Sender: FDA-Public Use
  Company Number: PK-MACLEODS PHARMACEUTICALS US LTD-MAC2018019437

PATIENT

DRUGS (2)
  1. TRIAMCINOLONE [Suspect]
     Active Substance: TRIAMCINOLONE
     Indication: EYELID HAEMANGIOMA
     Dosage: 0.4 MILLIGRAM, SINGLE, IN 0.1 ML, INJECTION, STEROID
     Route: 026
  2. PROPRANOLOL HYDROCHLORIDE. [Suspect]
     Active Substance: PROPRANOLOL HYDROCHLORIDE
     Indication: EYELID HAEMANGIOMA
     Dosage: 1 MILLIGRAM/KILOGRAM, BODY WEIGHT, BETABLOCKER
     Route: 048

REACTIONS (1)
  - Drug ineffective [Recovered/Resolved]
